FAERS Safety Report 13571914 (Version 1)
Quarter: 2017Q2

REPORT INFORMATION
  Report Type: Spontaneous
  Country: US (occurrence: US)
  Receive Date: 20170522
  Receipt Date: 20170522
  Transmission Date: 20170830
  Serious: Yes (Hospitalization, Other)
  Sender: FDA-Public Use
  Company Number: None

PATIENT
  Age: 62 Year
  Sex: Male
  Weight: 92.9 kg

DRUGS (1)
  1. ALBUTEROL. [Suspect]
     Active Substance: ALBUTEROL
     Indication: CHRONIC OBSTRUCTIVE PULMONARY DISEASE
     Dosage: 1 OTHER INHALE
     Route: 055
     Dates: start: 20170107, end: 20170108

REACTIONS (3)
  - Atrial fibrillation [None]
  - Tachyarrhythmia [None]
  - Tachycardia [None]

NARRATIVE: CASE EVENT DATE: 20170108
